FAERS Safety Report 20977120 (Version 2)
Quarter: 2022Q3

REPORT INFORMATION
  Report Type: Spontaneous
  Country: LT (occurrence: LT)
  Receive Date: 20220617
  Receipt Date: 20220928
  Transmission Date: 20221027
  Serious: No
  Sender: FDA-Public Use
  Company Number: LT-KRKA-LT2022K07072LIT

PATIENT
  Sex: Female

DRUGS (27)
  1. DIAZEPAM [Suspect]
     Active Substance: DIAZEPAM
     Indication: Tension
     Dosage: UP TO 10 MG PER DAY
     Route: 065
  2. DIAZEPAM [Suspect]
     Active Substance: DIAZEPAM
     Indication: Anxiety
     Route: 065
  3. DIAZEPAM [Suspect]
     Active Substance: DIAZEPAM
     Indication: Prophylaxis
  4. SERTRALINE [Suspect]
     Active Substance: SERTRALINE HYDROCHLORIDE
     Indication: Depression
     Dosage: IN THE MORNING
     Route: 065
  5. SERTRALINE [Suspect]
     Active Substance: SERTRALINE HYDROCHLORIDE
     Indication: Parkinson^s disease psychosis
     Dosage: UP TO 150 MG
     Route: 065
  6. QUETIAPINE [Suspect]
     Active Substance: QUETIAPINE
     Indication: Depression
     Dosage: AT NIGHT
     Route: 065
  7. QUETIAPINE [Suspect]
     Active Substance: QUETIAPINE
     Indication: Parkinson^s disease psychosis
     Route: 065
  8. QUETIAPINE [Suspect]
     Active Substance: QUETIAPINE
     Dosage: UP TO 450 MG PER DAY
     Route: 065
  9. LEVODOPA [Suspect]
     Active Substance: LEVODOPA
     Indication: Parkinson^s disease
     Route: 065
  10. LEVODOPA [Suspect]
     Active Substance: LEVODOPA
     Dosage: DOSE INCREASED UP TO 4 TIMES
     Route: 065
  11. LEVODOPA [Suspect]
     Active Substance: LEVODOPA
     Dosage: DOSE WAS INCREASED AGAIN
     Route: 065
  12. LEVODOPA [Suspect]
     Active Substance: LEVODOPA
     Dosage: 5 TIMES A DAY
     Route: 048
  13. BENSERAZIDE [Suspect]
     Active Substance: BENSERAZIDE
     Indication: Parkinson^s disease
     Dosage: INCREASED UP TO 4 TIMES A DAY
     Route: 065
  14. BENSERAZIDE [Suspect]
     Active Substance: BENSERAZIDE
     Dosage: INCREASED UP TO 4 TIMES A DAY
     Route: 065
  15. BENSERAZIDE [Suspect]
     Active Substance: BENSERAZIDE
     Dosage: 5 TIMES A DAY
     Route: 048
  16. ROPINIROLE [Suspect]
     Active Substance: ROPINIROLE
     Indication: Parkinson^s disease
     Dosage: GRADUALLY INCREASED TO 8 MG PER DAY
     Route: 065
  17. ROPINIROLE [Suspect]
     Active Substance: ROPINIROLE
     Dosage: GRADUALLY INCREASED UP TO 12 MG PER DAY
     Route: 065
  18. ROPINIROLE [Suspect]
     Active Substance: ROPINIROLE
     Dosage: GRADUALLY INCREASED THE DOSE OF ROPINIROLE (UP TO 20 MG PER DAY) ON OWN
     Route: 065
  19. ROPINIROLE [Suspect]
     Active Substance: ROPINIROLE
     Dosage: BUT IT WAS RECOMMENDED TO GRADUALLY REDUCE THE DOSE OF ROPINIROLE (2 MG PER WEEK)
     Route: 065
  20. MIRTAZAPINE [Suspect]
     Active Substance: MIRTAZAPINE
     Indication: Prophylaxis
     Route: 065
  21. MIRTAZAPINE [Suspect]
     Active Substance: MIRTAZAPINE
     Indication: Parkinson^s disease psychosis
     Route: 065
  22. BROMAZEPAM [Suspect]
     Active Substance: BROMAZEPAM
     Indication: Prophylaxis
     Dosage: UP TO 6 MG PER DAY
     Route: 065
  23. BROMAZEPAM [Suspect]
     Active Substance: BROMAZEPAM
     Indication: Parkinson^s disease psychosis
  24. TRIHEXYPHENIDYL [Suspect]
     Active Substance: TRIHEXYPHENIDYL
     Indication: Tension
     Dosage: UP TO 4 MG PER DAY
     Route: 065
  25. TRIHEXYPHENIDYL [Suspect]
     Active Substance: TRIHEXYPHENIDYL
     Indication: Anxiety
  26. TRIHEXYPHENIDYL [Suspect]
     Active Substance: TRIHEXYPHENIDYL
     Indication: Prophylaxis
  27. OLANZAPINE [Suspect]
     Active Substance: OLANZAPINE
     Indication: Parkinson^s disease psychosis
     Dosage: THE DOSE WAS TITRATED UP TO 15 MG/DAY
     Route: 065

REACTIONS (1)
  - Therapeutic product effect incomplete [Unknown]
